FAERS Safety Report 12571200 (Version 2)
Quarter: 2016Q3

REPORT INFORMATION
  Report Type: Spontaneous
  Country: JP (occurrence: JP)
  Receive Date: 20160719
  Receipt Date: 20160913
  Transmission Date: 20161109
  Serious: Yes (Death)
  Sender: FDA-Public Use
  Company Number: JP-TEVA-675558ISR

PATIENT
  Sex: Female
  Weight: 52 kg

DRUGS (4)
  1. FENTOS [Concomitant]
     Active Substance: FENTANYL
     Dosage: 2 MILLIGRAM DAILY;
     Route: 062
     Dates: start: 20140920, end: 20140925
  2. CRAVIT [Concomitant]
     Active Substance: LEVOFLOXACIN
     Indication: CYSTITIS
     Dosage: 500 MILLIGRAM DAILY;
     Route: 065
     Dates: start: 20140919, end: 20140921
  3. FENTOS [Concomitant]
     Active Substance: FENTANYL
     Indication: CANCER PAIN
     Dosage: 4 MILLIGRAM DAILY;
     Route: 062
     Dates: start: 20140916, end: 20140919
  4. E-FEN BUCCAL [Suspect]
     Active Substance: FENTANYL CITRATE
     Indication: BREAKTHROUGH PAIN
     Dosage: DAILY DOSE 0-100 MICROGRAM
     Route: 002
     Dates: start: 20140917, end: 20140919

REACTIONS (1)
  - Metastases to liver [Fatal]
